FAERS Safety Report 20608062 (Version 2)
Quarter: 2022Q2

REPORT INFORMATION
  Report Type: Spontaneous
  Country: US (occurrence: US)
  Receive Date: 20220317
  Receipt Date: 20220426
  Transmission Date: 20220721
  Serious: No
  Sender: FDA-Public Use
  Company Number: US-KARYOPHARM-2022KPT000289

PATIENT

DRUGS (6)
  1. XPOVIO [Suspect]
     Active Substance: SELINEXOR
     Indication: Plasma cell myeloma
     Dosage: 60 MG, WEEKLY
     Route: 048
     Dates: start: 20220218
  2. ACYCLOVIR [Concomitant]
     Active Substance: ACYCLOVIR
     Dosage: 400 MG
  3. ZOFRAN [Concomitant]
     Active Substance: ONDANSETRON HYDROCHLORIDE
     Dosage: 4 MG
  4. RISPERIDONE [Concomitant]
     Active Substance: RISPERIDONE
     Dosage: 1 MG
  5. POMALYST [Concomitant]
     Active Substance: POMALIDOMIDE
     Dosage: 3 MG
  6. GLUTATHIONE [Concomitant]
     Active Substance: GLUTATHIONE
     Dosage: 50 MG

REACTIONS (6)
  - Functional gastrointestinal disorder [Recovering/Resolving]
  - Dyspepsia [Recovering/Resolving]
  - Abdominal distension [Unknown]
  - Nausea [Unknown]
  - Decreased appetite [Unknown]
  - Constipation [Unknown]

NARRATIVE: CASE EVENT DATE: 20220101
